FAERS Safety Report 7207114-1 (Version None)
Quarter: 2011Q1

REPORT INFORMATION
  Report Type: 
  Country: None (occurrence: None)
  Receive Date: 20110103
  Receipt Date: 20101220
  Transmission Date: 20110831
  Serious: Yes (Hospitalization)
  Sender: FDA-Public Use
  Company Number: US-ROCHE-542160

PATIENT
  Sex: Male
  Weight: 83.9 kg

DRUGS (13)
  1. CARBOPLATIN [Concomitant]
     Indication: NON-SMALL CELL LUNG CANCER METASTATIC
     Dates: start: 20070308
  2. ZYPREXA [Concomitant]
     Dosage: 2.5 MG, BID
  3. NORTRIPTYLINE [Concomitant]
     Dosage: 10 MG, BID
  4. LORAZEPAM [Concomitant]
     Dosage: 0.5 MG, PRN
  5. OXYCODONE [Concomitant]
     Dosage: 15 MG, PRN
  6. MEGACE [Concomitant]
  7. AMLODIPINE [Concomitant]
     Dosage: 2.5 MG, BID
  8. LOVENOX [Concomitant]
     Dosage: 120 MG, QD
  9. ERLOTINIB [Suspect]
     Indication: NON-SMALL CELL LUNG CANCER
     Dosage: 100 MG, QD
     Route: 048
     Dates: start: 20070604
  10. DOCETAXEL [Concomitant]
     Indication: NON-SMALL CELL LUNG CANCER METASTATIC
     Dates: start: 20070308, end: 20070510
  11. LIDODERM [Concomitant]
     Dosage: 5 %, UNK
  12. FENTANYL [Concomitant]
     Dosage: 100 UG, UNK
  13. BEVACIZUMAB [Suspect]
     Indication: NON-SMALL CELL LUNG CANCER
     Dosage: 1240 MG, Q3W
     Route: 042
     Dates: start: 20070308

REACTIONS (1)
  - COGNITIVE DISORDER [None]
